FAERS Safety Report 9594869 (Version 1)
Quarter: 2013Q4

REPORT INFORMATION
  Report Type: Spontaneous
  Country: FR (occurrence: FR)
  Receive Date: 20131004
  Receipt Date: 20131004
  Transmission Date: 20140711
  Serious: Yes (Hospitalization, Other)
  Sender: FDA-Public Use
  Company Number: FR-ROXANE LABORATORIES, INC.-2013-RO-01612RO

PATIENT
  Age: 49 Year
  Sex: Male

DRUGS (10)
  1. AZATHIOPRINE [Suspect]
     Indication: COLITIS ULCERATIVE
     Dates: start: 200801
  2. AZATHIOPRINE [Suspect]
     Dates: start: 2008
  3. PREDNISONE [Suspect]
     Indication: COLITIS ULCERATIVE
     Route: 042
  4. CIPROFLOXACIN [Suspect]
     Indication: COLITIS ULCERATIVE
     Dosage: 1000 MG
  5. CYCLOSPORIN [Suspect]
     Indication: COLITIS ULCERATIVE
     Route: 042
  6. CYCLOSPORIN [Suspect]
     Route: 048
  7. METRONIDAZOLE [Suspect]
     Indication: CYTOMEGALOVIRUS INFECTION
     Route: 048
  8. GANCICLOVIR [Suspect]
     Indication: CYTOMEGALOVIRUS INFECTION
     Route: 042
  9. INFLIXIMAB [Suspect]
     Indication: COLITIS ULCERATIVE
     Route: 042
  10. INFLIXIMAB [Suspect]
     Route: 042

REACTIONS (4)
  - Colitis ulcerative [Recovered/Resolved]
  - Human herpesvirus 8 infection [Recovered/Resolved]
  - Kaposi^s sarcoma [Recovered/Resolved]
  - Cytomegalovirus infection [Recovered/Resolved]
